FAERS Safety Report 9413392 (Version 2)
Quarter: 2014Q2

REPORT INFORMATION
  Report Type: Spontaneous
  Country: US (occurrence: US)
  Receive Date: 20130722
  Receipt Date: 20140404
  Transmission Date: 20141212
  Serious: Yes (Death, Other)
  Sender: FDA-Public Use
  Company Number: US-GILEAD-2013-0079369

PATIENT
  Age: 74 Year
  Sex: Male
  Weight: 73.92 kg

DRUGS (10)
  1. RANEXA [Suspect]
     Indication: ANGINA PECTORIS
     Dosage: 1000 MG, BID
     Route: 048
     Dates: start: 20130422
  2. RANEXA [Suspect]
     Dosage: 500 MG, BID
     Route: 048
     Dates: start: 201301
  3. BACTRIM [Suspect]
     Indication: PRODUCT USED FOR UNKNOWN INDICATION
     Dosage: UNK
     Route: 065
     Dates: start: 20130424
  4. PREDNISONE [Suspect]
     Indication: PRODUCT USED FOR UNKNOWN INDICATION
     Dosage: UNK
     Route: 051
     Dates: start: 20130424
  5. PLETAL [Concomitant]
     Dosage: UNK
     Route: 048
  6. ASPIRIN [Concomitant]
     Dosage: UNK
     Route: 048
  7. PLAVIX [Concomitant]
     Dosage: UNK
     Route: 048
  8. SYNTHROID [Concomitant]
     Route: 048
  9. TOPROL [Concomitant]
     Route: 048
  10. ZOCOR [Concomitant]
     Dosage: UNK
     Route: 048

REACTIONS (6)
  - Sudden cardiac death [Fatal]
  - Angina pectoris [Fatal]
  - Coronary artery disease [Fatal]
  - Aortic stenosis [Fatal]
  - Hypertension [Fatal]
  - Hypercholesterolaemia [Fatal]
